FAERS Safety Report 6258618-X (Version None)
Quarter: 2009Q3

REPORT INFORMATION
  Report Type: 
  Country: None (occurrence: None)
  Receive Date: 20090707
  Receipt Date: 20090630
  Transmission Date: 20100115
  Serious: No
  Sender: FDA-Public Use
  Company Number: US-JNJFOC-20090700395

PATIENT
  Sex: Female
  Weight: 55.34 kg

DRUGS (10)
  1. FENTANYL TRANSDERMAL SYSTEM [Suspect]
     Indication: ABDOMINAL PAIN
     Dosage: 100 UG/HR PLUS 50 UG/HR
     Route: 062
  2. CALCIUM CARBONATE [Concomitant]
     Indication: NUTRITIONAL SUPPORT
     Route: 048
  3. PROTONIX [Concomitant]
     Indication: PANCREATITIS
     Route: 048
  4. DRONABINOL [Concomitant]
     Indication: NAUSEA
     Route: 048
  5. VIOKASE [Concomitant]
     Indication: DYSPEPSIA
     Dosage: BEFORE MEALS
     Route: 048
  6. MIRALAX [Concomitant]
     Indication: CONSTIPATION
     Route: 048
  7. FEXOFENADINE [Concomitant]
     Indication: MULTIPLE ALLERGIES
     Route: 048
  8. LANTHANUM CARBONATE [Concomitant]
     Indication: NUTRITIONAL SUPPORT
     Route: 048
  9. VITAMIN B-12 [Concomitant]
     Indication: NUTRITIONAL SUPPORT
     Route: 030
  10. BENADRYL [Concomitant]
     Indication: MULTIPLE ALLERGIES
     Route: 048

REACTIONS (14)
  - ABNORMAL DREAMS [None]
  - DEVICE LEAKAGE [None]
  - DRUG DOSE OMISSION [None]
  - EYE PRURITUS [None]
  - HYPERSENSITIVITY [None]
  - INAPPROPRIATE SCHEDULE OF DRUG ADMINISTRATION [None]
  - LACRIMATION INCREASED [None]
  - POOR QUALITY SLEEP [None]
  - RASH PRURITIC [None]
  - RHINORRHOEA [None]
  - SKIN LESION [None]
  - THROAT IRRITATION [None]
  - WITHDRAWAL SYNDROME [None]
  - WRONG TECHNIQUE IN DRUG USAGE PROCESS [None]
